FAERS Safety Report 10678103 (Version 1)
Quarter: 2014Q4

REPORT INFORMATION
  Report Type: Report from Study
  Country: JP (occurrence: JP)
  Receive Date: 20141229
  Receipt Date: 20141229
  Transmission Date: 20150529
  Serious: Yes (Other)
  Sender: FDA-Public Use
  Company Number: JP-TEVA-531368ISR

PATIENT
  Sex: Female

DRUGS (6)
  1. DOXORUBICIN [Suspect]
     Active Substance: DOXORUBICIN
     Indication: ENDOMETRIAL CANCER
     Dosage: OVER 30 MIN EVERY 21 DAYS; INTRAVENOUS
     Route: 042
  2. DEXAMETHASONE. [Concomitant]
     Active Substance: DEXAMETHASONE
  3. CISPLATIN. [Suspect]
     Active Substance: CISPLATIN
     Indication: ENDOMETRIAL CANCER
     Dosage: 50 MG/M2 DAILY; 50 MG/M2, OVER 2 HOURS, DAILY ON DAY 1, EVERY 21 DAYS
     Route: 041
  4. PACLITAXEL. [Suspect]
     Active Substance: PACLITAXEL
     Indication: ENDOMETRIAL CANCER
     Dosage: 160 MG/M2, OVER 3 HOURS DAILY, ON DAY 2, EVERY 21
     Route: 041
  5. PALONOSETRON [Concomitant]
     Active Substance: PALONOSETRON
  6. APREPITANT. [Concomitant]
     Active Substance: APREPITANT

REACTIONS (1)
  - Ileus [Recovered/Resolved]
